FAERS Safety Report 15285990 (Version 1)
Quarter: 2018Q3

REPORT INFORMATION
  Report Type: Spontaneous
  Country: US (occurrence: US)
  Receive Date: 20180802
  Receipt Date: 20180802
  Transmission Date: 20181010
  Serious: Yes (Life-Threatening, Hospitalization, Other)
  Sender: FDA-Public Use
  Company Number: None

PATIENT
  Age: 55 Year
  Sex: Male
  Weight: 111 kg

DRUGS (8)
  1. DAPAGLIFLOZIN 5 MG QD [Concomitant]
  2. GABAPENTIN 100 MG TID [Concomitant]
  3. PANTOPRAZOLE 40 MG BID [Concomitant]
  4. ATORVASTATIN 10 MG QPM [Concomitant]
  5. BYDUREON [Suspect]
     Active Substance: EXENATIDE
     Indication: DIABETES MELLITUS
     Dosage: ?          OTHER FREQUENCY:WEEKLY;?
     Route: 058
     Dates: start: 20180315, end: 20180623
  6. METHOCARBAMOL 750 MG QIDPRN [Concomitant]
  7. GLIMEPERIDE 8 MG QD [Concomitant]
  8. METFORMIN 1000 MG BID [Concomitant]

REACTIONS (1)
  - Thrombocytopenic purpura [None]

NARRATIVE: CASE EVENT DATE: 20180623
